FAERS Safety Report 5930470-9 (Version None)
Quarter: 2008Q4

REPORT INFORMATION
  Report Type: 
  Country: None (occurrence: None)
  Receive Date: 20081023
  Receipt Date: 20060324
  Transmission Date: 20090506
  Serious: Yes (Hospitalization, Other)
  Sender: FDA-Public Use
  Company Number: 2006AL001953

PATIENT
  Age: 79 Year
  Sex: Male

DRUGS (5)
  1. DICLOFENAC SODIUM EXTENDED-RELEASE TABLET, 100 MG (PUREPAC) (DICLOFENA [Suspect]
     Indication: PAIN IN EXTREMITY
     Dosage: 200 MG; BID; PO
     Route: 048
  2. ASPIRIN [Concomitant]
  3. METOPROLOL TARTRATE [Concomitant]
  4. SIMVASTATIN [Concomitant]
  5. IRBESARTAN [Concomitant]

REACTIONS (5)
  - BLOOD UREA INCREASED [None]
  - COLD SWEAT [None]
  - GASTROINTESTINAL HAEMORRHAGE [None]
  - HAEMATEMESIS [None]
  - OCCULT BLOOD POSITIVE [None]
